FAERS Safety Report 16797850 (Version 2)
Quarter: 2020Q2

REPORT INFORMATION
  Report Type: Spontaneous
  Country: US (occurrence: US)
  Receive Date: 20190912
  Receipt Date: 20200408
  Transmission Date: 20200713
  Serious: Yes (Death, Hospitalization, Other)
  Sender: FDA-Public Use
  Company Number: US-009507513-1909USA003765

PATIENT
  Sex: Male
  Weight: 87.53 kg

DRUGS (5)
  1. JANUMET [Suspect]
     Active Substance: METFORMIN HYDROCHLORIDE\SITAGLIPTIN PHOSPHATE
     Indication: TYPE 2 DIABETES MELLITUS
     Dosage: 50MG/500MG, TWICE DAILY
     Route: 048
     Dates: start: 20160810, end: 201609
  2. FILGRASTIM [Suspect]
     Active Substance: FILGRASTIM
  3. DILAUDID [Suspect]
     Active Substance: HYDROMORPHONE HYDROCHLORIDE
  4. JANUVIA [Suspect]
     Active Substance: SITAGLIPTIN PHOSPHATE
     Indication: TYPE 2 DIABETES MELLITUS
     Dosage: 100 MILLIGRAM, ONCE DAILY
     Route: 048
     Dates: start: 20141003, end: 201608
  5. METFORMIN [Suspect]
     Active Substance: METFORMIN HYDROCHLORIDE

REACTIONS (48)
  - Adenocarcinoma pancreas [Fatal]
  - Immunodeficiency [Unknown]
  - Metastases to liver [Unknown]
  - Peripheral vascular disorder [Not Recovered/Not Resolved]
  - Malnutrition [Unknown]
  - Pallor [Unknown]
  - Myoclonus [Recovering/Resolving]
  - Musculoskeletal pain [Unknown]
  - Hypomagnesaemia [Unknown]
  - Sepsis [Unknown]
  - Malignant neoplasm progression [Unknown]
  - Back pain [Not Recovered/Not Resolved]
  - Cardiac murmur [Unknown]
  - Hypoalbuminaemia [Unknown]
  - Pain [Unknown]
  - Pyrexia [Unknown]
  - Musculoskeletal chest pain [Unknown]
  - Constipation [Not Recovered/Not Resolved]
  - Depression [Recovering/Resolving]
  - Coronary artery disease [Unknown]
  - Nasopharyngitis [Unknown]
  - Catheter site infection [Unknown]
  - Cholestasis [Recovering/Resolving]
  - Pancreatic carcinoma metastatic [Fatal]
  - Febrile neutropenia [Unknown]
  - Oedema peripheral [Unknown]
  - Bile duct obstruction [Recovering/Resolving]
  - Hypokalaemia [Unknown]
  - Muscle strain [Unknown]
  - Duodenitis [Unknown]
  - Hepatic cancer metastatic [Unknown]
  - Dizziness postural [Unknown]
  - Rib fracture [Unknown]
  - Duodenitis [Unknown]
  - Neuropathy peripheral [Not Recovered/Not Resolved]
  - Pyrexia [Recovered/Resolved]
  - Richter^s hernia [Unknown]
  - Neuropathy peripheral [Unknown]
  - Ulcer [Not Recovered/Not Resolved]
  - Dyspnoea [Unknown]
  - Enteritis [Unknown]
  - Diabetic neuropathy [Unknown]
  - Pulmonary mass [Unknown]
  - Adverse event [Unknown]
  - Diabetes mellitus inadequate control [Unknown]
  - Systemic inflammatory response syndrome [Unknown]
  - Metastases to lung [Unknown]
  - Rash pruritic [Recovering/Resolving]

NARRATIVE: CASE EVENT DATE: 20150604
